FAERS Safety Report 25675536 (Version 2)
Quarter: 2025Q3

REPORT INFORMATION
  Report Type: Spontaneous
  Country: IR (occurrence: IR)
  Receive Date: 20250813
  Receipt Date: 20250822
  Transmission Date: 20251021
  Serious: Yes (Hospitalization)
  Sender: MERCK SHARP & DOHME LLC
  Company Number: IR-009507513-2319181

PATIENT
  Age: 47 Year
  Sex: Male

DRUGS (1)
  1. PEMBROLIZUMAB [Suspect]
     Active Substance: PEMBROLIZUMAB
     Indication: Hodgkin^s disease

REACTIONS (2)
  - Chronic lymphocytic inflammation with pontine perivascular enhancement responsive to steroids [Recovering/Resolving]
  - Immune-mediated encephalitis [Recovering/Resolving]
